FAERS Safety Report 5027706-8 (Version None)
Quarter: 2006Q2

REPORT INFORMATION
  Report Type: 
  Country: None (occurrence: None)
  Receive Date: 20060616
  Receipt Date: 20060605
  Transmission Date: 20061013
  Serious: Yes (Other)
  Sender: FDA-Public Use
  Company Number: US-JNJFOC-20060601555

PATIENT
  Sex: Female

DRUGS (6)
  1. TOPAMAX [Suspect]
     Route: 048
  2. TOPAMAX [Suspect]
     Indication: PAIN
     Route: 048
  3. HYDROCODONE [Concomitant]
     Indication: ANALGESIC EFFECT
  4. AMBIEN [Concomitant]
     Indication: SLEEP DISORDER THERAPY
  5. CYCLOBENZAPRINE HCL [Concomitant]
     Indication: MUSCLE RELAXANT THERAPY
  6. BENICAR [Concomitant]
     Indication: HYPERTENSION

REACTIONS (1)
  - ACTIVATED PARTIAL THROMBOPLASTIN TIME PROLONGED [None]
